FAERS Safety Report 15104702 (Version 1)
Quarter: 2018Q3

REPORT INFORMATION
  Report Type: Spontaneous
  Country: US (occurrence: US)
  Receive Date: 20180703
  Receipt Date: 20180703
  Transmission Date: 20181010
  Serious: No
  Sender: FDA-Public Use
  Company Number: US-BAUSCH-BL-2017-032733

PATIENT
  Age: 73 Year
  Sex: Female
  Weight: 65.83 kg

DRUGS (4)
  1. PROLENSA [Suspect]
     Active Substance: BROMFENAC SODIUM
     Indication: POSTOPERATIVE CARE
     Dosage: 1 GTT EVERY 8 HOURS, IN THE RIGHT EYE
     Route: 047
     Dates: start: 20170928, end: 2017
  2. BESIVANCE [Suspect]
     Active Substance: BESIFLOXACIN
     Indication: POSTOPERATIVE CARE
  3. BESIVANCE [Suspect]
     Active Substance: BESIFLOXACIN
     Indication: PREOPERATIVE CARE
     Dosage: 1 GTT EVERY 8 HOURS, IN THE RIGHT EYE
     Route: 047
     Dates: start: 20170925, end: 20171002
  4. LOTEMAX [Suspect]
     Active Substance: LOTEPREDNOL ETABONATE
     Indication: POSTOPERATIVE CARE
     Dosage: IN THE RIGHT EYE, 1 GTT EVERY 8 HOURS
     Route: 047
     Dates: start: 20170928, end: 2017

REACTIONS (6)
  - Intraocular pressure increased [Recovering/Resolving]
  - Off label use [Recovered/Resolved]
  - Foreign body sensation in eyes [Recovered/Resolved]
  - Lens disorder [Not Recovered/Not Resolved]
  - Product physical consistency issue [Unknown]
  - Pruritus [Recovered/Resolved]

NARRATIVE: CASE EVENT DATE: 201709
